FAERS Safety Report 4593871-X (Version None)
Quarter: 2005Q1

REPORT INFORMATION
  Report Type: 
  Country: None (occurrence: None)
  Receive Date: 20050301
  Receipt Date: 20050218
  Transmission Date: 20050727
  Serious: Yes (Hospitalization)
  Sender: FDA-Public Use
  Company Number: FR-ROCHE-396000

PATIENT
  Age: 78 Year
  Sex: Male

DRUGS (3)
  1. RIVOTRIL [Suspect]
     Indication: TRIGEMINAL NEURALGIA
     Route: 065
  2. TEGRETOL [Suspect]
     Indication: TRIGEMINAL NEURALGIA
     Route: 048
  3. TEGRETOL [Suspect]
     Dosage: HALF THE DOSE.
     Route: 048
     Dates: start: 20041123

REACTIONS (5)
  - ATRIOVENTRICULAR BLOCK [None]
  - CARDIAC DISORDER [None]
  - ELECTROCARDIOGRAM PR PROLONGATION [None]
  - HYPOTENSION [None]
  - SHOCK [None]
